FAERS Safety Report 15319326 (Version 1)
Quarter: 2018Q3

REPORT INFORMATION
  Report Type: Spontaneous
  Country: US (occurrence: US)
  Receive Date: 20180827
  Receipt Date: 20180827
  Transmission Date: 20181010
  Serious: Yes (Other)
  Sender: FDA-Public Use
  Company Number: US-LUPIN PHARMACEUTICALS INC.-2018-05917

PATIENT
  Age: 57 Year
  Sex: Female

DRUGS (1)
  1. TRIAMCINOLONE ACETONIDE. [Suspect]
     Active Substance: TRIAMCINOLONE ACETONIDE
     Indication: CHALAZION
     Dosage: UNK, 2 ML OF TRIAMCINOLONE ACETONIDE 40 MG/ML SUSPENSION
     Route: 047

REACTIONS (2)
  - Product deposit [Unknown]
  - Skin mass [Unknown]
